FAERS Safety Report 16359353 (Version 5)
Quarter: 2021Q2

REPORT INFORMATION
  Report Type: Report from Study
  Country: JP (occurrence: JP)
  Receive Date: 20190528
  Receipt Date: 20210519
  Transmission Date: 20210716
  Serious: No
  Sender: FDA-Public Use
  Company Number: JP-ALEXION PHARMACEUTICALS INC.-A201907677

PATIENT
  Age: 56 Year
  Sex: Female
  Weight: 49 kg

DRUGS (3)
  1. KANUMA [Suspect]
     Active Substance: SEBELIPASE ALFA
     Indication: LYSOSOMAL ACID LIPASE DEFICIENCY
     Dosage: 1 MG/KG, Q2W
     Route: 042
     Dates: start: 20170323, end: 20180501
  2. KANUMA [Suspect]
     Active Substance: SEBELIPASE ALFA
     Dosage: 3 MG/KG, Q2W
     Route: 042
     Dates: start: 20190426
  3. KANUMA [Suspect]
     Active Substance: SEBELIPASE ALFA
     Dosage: 2 MG/KG, Q2W
     Route: 042
     Dates: start: 20180515, end: 20190416

REACTIONS (2)
  - Rotator cuff syndrome [Recovered/Resolved]
  - Adrenomegaly [Unknown]

NARRATIVE: CASE EVENT DATE: 2018
